FAERS Safety Report 10040745 (Version 2)
Quarter: 2014Q2

REPORT INFORMATION
  Report Type: Spontaneous
  Country: GB (occurrence: GB)
  Receive Date: 20140327
  Receipt Date: 20140424
  Transmission Date: 20141212
  Serious: Yes (Death, Other)
  Sender: FDA-Public Use
  Company Number: GB-JNJFOC-20140309155

PATIENT
  Sex: Female

DRUGS (7)
  1. DOXORUBICIN [Suspect]
     Indication: CHEMOTHERAPY
     Route: 042
  2. DOXORUBICIN [Suspect]
     Indication: PRODUCT USED FOR UNKNOWN INDICATION
     Route: 042
  3. MEPACT [Suspect]
     Indication: CHEMOTHERAPY
     Route: 065
  4. MEPACT [Suspect]
     Indication: PRODUCT USED FOR UNKNOWN INDICATION
     Route: 065
  5. CISPLATIN [Concomitant]
     Indication: CHEMOTHERAPY
     Route: 065
  6. CISPLATIN [Concomitant]
     Indication: PRODUCT USED FOR UNKNOWN INDICATION
     Route: 065
  7. METHOTREXATE [Concomitant]
     Route: 065

REACTIONS (2)
  - Cardiotoxicity [Fatal]
  - Sepsis [Fatal]
